FAERS Safety Report 16355961 (Version 1)
Quarter: 2019Q2

REPORT INFORMATION
  Report Type: Spontaneous
  Country: US (occurrence: US)
  Receive Date: 20190526
  Receipt Date: 20190526
  Transmission Date: 20190711
  Serious: No
  Sender: FDA-Public Use
  Company Number: US-JNJFOC-20190512500

PATIENT
  Sex: Male
  Weight: 106.6 kg

DRUGS (1)
  1. REMICADE [Suspect]
     Active Substance: INFLIXIMAB
     Indication: COLITIS ULCERATIVE
     Route: 042
     Dates: start: 201901

REACTIONS (2)
  - Laboratory test abnormal [Unknown]
  - Streptococcal infection [Unknown]

NARRATIVE: CASE EVENT DATE: 2019
